FAERS Safety Report 8419767-0 (Version None)
Quarter: 2012Q2

REPORT INFORMATION
  Report Type: 
  Country: None (occurrence: None)
  Receive Date: 20120607
  Receipt Date: 20120606
  Transmission Date: 20120825
  Serious: Yes (Death, Hospitalization)
  Sender: FDA-Public Use
  Company Number: PHHY2012GR025983

PATIENT
  Age: 74 Year
  Sex: Male

DRUGS (2)
  1. VORICONAZOLE [Suspect]
     Indication: TRICHOSPORON INFECTION
  2. FLUCONAZOLE [Suspect]

REACTIONS (2)
  - DRUG INEFFECTIVE [None]
  - TRICHOSPORON INFECTION [None]
